FAERS Safety Report 17699028 (Version 1)
Quarter: 2020Q2

REPORT INFORMATION
  Report Type: Spontaneous
  Country: US (occurrence: US)
  Receive Date: 20200423
  Receipt Date: 20200423
  Transmission Date: 20200714
  Serious: Yes (Disabling)
  Sender: FDA-Public Use
  Company Number: None

PATIENT
  Age: 66 Year
  Sex: Male
  Weight: 93.6 kg

DRUGS (7)
  1. CYCLOBENZPRINE [Concomitant]
  2. AIMOVIG [Suspect]
     Active Substance: ERENUMAB-AOOE
     Indication: MIGRAINE
     Dosage: ?          QUANTITY:1 INJECTION(S);?
     Route: 030
  3. CELEBREX [Concomitant]
     Active Substance: CELECOXIB
  4. LISINOPRIL-HCTZ [Concomitant]
     Active Substance: HYDROCHLOROTHIAZIDE\LISINOPRIL
  5. TAMSULOSIN [Concomitant]
     Active Substance: TAMSULOSIN
  6. SUMATRIPTAN. [Concomitant]
     Active Substance: SUMATRIPTAN
  7. METOPROLOL ER SUCCINATE [Concomitant]
     Active Substance: METOPROLOL SUCCINATE

REACTIONS (5)
  - Abdominal pain [None]
  - Migraine [None]
  - Loss of personal independence in daily activities [None]
  - Bedridden [None]
  - Condition aggravated [None]

NARRATIVE: CASE EVENT DATE: 20200119
